FAERS Safety Report 9504167 (Version 1)
Quarter: 2013Q1

REPORT INFORMATION
  Report Type: Spontaneous
  Country: US (occurrence: None)
  Receive Date: 20130225
  Receipt Date: 20130225
  Transmission Date: 20140127
  Serious: No
  Sender: FDA-Public Use
  Company Number: 364208

PATIENT
  Age: 74 Year
  Sex: Female

DRUGS (3)
  1. NOVOLOG MIX 70/30 FLEXPEN (INSULIN ASPART) SUSPENSION FOR INJECTION, 100U/ML [Suspect]
     Indication: TYPE 2 DIABETES MELLITUS
     Route: 058
  2. VICTOZA (LIRAGLUTIDE) SOLUTION FOR INJECTION, 6 MG/ML [Suspect]
     Indication: TYPE 2 DIABETES MELLITUS
     Route: 058
  3. INSULIN LISPRO PROTAMINE [Concomitant]

REACTIONS (4)
  - Pain in extremity [None]
  - Burning sensation [None]
  - Drug hypersensitivity [None]
  - Hyperglycaemia [None]
